FAERS Safety Report 4549707-6 (Version None)
Quarter: 2005Q1

REPORT INFORMATION
  Report Type: 
  Country: None (occurrence: None)
  Receive Date: 20050110
  Receipt Date: 20041229
  Transmission Date: 20050727
  Serious: Yes (Other)
  Sender: FDA-Public Use
  Company Number: 2004106761

PATIENT
  Age: 67 Year
  Sex: Male
  Weight: 95.2554 kg

DRUGS (6)
  1. VIAGRA [Suspect]
     Indication: ILL-DEFINED DISORDER
     Dosage: (100 MG, AS NECESSARY), ORAL
     Route: 048
  2. ALPROSTADIL [Suspect]
     Indication: ILL-DEFINED DISORDER
     Dates: start: 20040101
  3. PHENTOLAMINE (PHENTOLAMINE) [Suspect]
     Indication: ILL-DEFINED DISORDER
     Dates: start: 20040101
  4. PAPAVERINE (PAPAVERINE) [Suspect]
     Indication: ILL-DEFINED DISORDER
     Dates: start: 20040101
  5. VARDENAFIL HYDROCHLORIDE (VARDENAFIL HYDROCHLORIDE) [Suspect]
     Indication: ILL-DEFINED DISORDER
     Dates: start: 20040101
  6. TADALAFIL (TADALAFIL) [Suspect]
     Indication: ILL-DEFINED DISORDER
     Dates: start: 20040101

REACTIONS (5)
  - CYANOPSIA [None]
  - DRUG INEFFECTIVE [None]
  - HICCUPS [None]
  - PAINFUL ERECTION [None]
  - PROSTATE CANCER [None]
